FAERS Safety Report 25366249 (Version 1)
Quarter: 2025Q2

REPORT INFORMATION
  Report Type: Spontaneous
  Country: US (occurrence: US)
  Receive Date: 20250528
  Receipt Date: 20250528
  Transmission Date: 20250716
  Serious: No
  Sender: DR REDDYS
  Company Number: US-DRL-USA-USA/2025/05/007115

PATIENT
  Age: 77 Year
  Sex: Male

DRUGS (1)
  1. DOANS MAXIMUM STRENGTH [Suspect]
     Active Substance: MAGNESIUM SALICYLATE
     Indication: Back disorder
     Route: 065

REACTIONS (1)
  - Tinnitus [Not Recovered/Not Resolved]
